FAERS Safety Report 4664324-5 (Version None)
Quarter: 2005Q2

REPORT INFORMATION
  Report Type: 
  Country: None (occurrence: None)
  Receive Date: 20050518
  Receipt Date: 20050405
  Transmission Date: 20051028
  Serious: Yes (Other)
  Sender: FDA-Public Use
  Company Number: PHBS2005JP04929

PATIENT
  Age: 62 Year
  Sex: Female
  Weight: 56 kg

DRUGS (2)
  1. ZEPOLAS [Concomitant]
     Indication: BACK PAIN
     Dosage: UNK, UNK
     Route: 062
     Dates: start: 20050121, end: 20050329
  2. VOLTAREN [Suspect]
     Indication: ARTHRALGIA
     Dosage: 50 MG/DAY
     Route: 054
     Dates: start: 20050121, end: 20050329

REACTIONS (9)
  - BLOOD PRESSURE DECREASED [None]
  - DIZZINESS [None]
  - FEELING ABNORMAL [None]
  - HYPOXIA [None]
  - LOSS OF CONSCIOUSNESS [None]
  - SHOCK [None]
  - TREMOR [None]
  - VISUAL DISTURBANCE [None]
  - VOMITING [None]
